FAERS Safety Report 11793147 (Version 2)
Quarter: 2016Q3

REPORT INFORMATION
  Report Type: Report from Study
  Country: JP (occurrence: JP)
  Receive Date: 20151202
  Receipt Date: 20160803
  Transmission Date: 20161109
  Serious: Yes (Death, Hospitalization, Other)
  Sender: FDA-Public Use
  Company Number: PHHY2015JP126722

PATIENT
  Age: 63 Year
  Sex: Female

DRUGS (27)
  1. OFATUMUMAB [Suspect]
     Active Substance: OFATUMUMAB
     Indication: CHRONIC LYMPHOCYTIC LEUKAEMIA
     Dosage: 300 MG, QD
     Route: 041
     Dates: start: 20150424, end: 20150424
  2. OFATUMUMAB [Suspect]
     Active Substance: OFATUMUMAB
     Indication: B-CELL SMALL LYMPHOCYTIC LYMPHOMA
     Dosage: 2000 MG, QD
     Route: 041
     Dates: start: 20150501, end: 20150501
  3. ACETAMINOPHEN. [Concomitant]
     Active Substance: ACETAMINOPHEN
     Dosage: 300 MG, UNK
     Route: 065
     Dates: start: 20150501, end: 20150501
  4. CAFFEINE W/CHLORPHENAMINE MALEATE [Concomitant]
     Dosage: 5 MG, UNK
     Route: 065
     Dates: start: 20150708, end: 20150708
  5. SULFAMETHOXAZOLE [Concomitant]
     Active Substance: SULFAMETHOXAZOLE
     Indication: PRODUCT USED FOR UNKNOWN INDICATION
     Route: 048
  6. OFATUMUMAB [Suspect]
     Active Substance: OFATUMUMAB
     Dosage: 2000 MG, QD
     Route: 041
     Dates: start: 20150520, end: 20150520
  7. OFATUMUMAB [Suspect]
     Active Substance: OFATUMUMAB
     Dosage: 2000 MG, QD
     Route: 041
     Dates: start: 20150701, end: 20150701
  8. OFATUMUMAB [Suspect]
     Active Substance: OFATUMUMAB
     Dosage: 2000 MG, QD
     Route: 041
     Dates: start: 20150708, end: 20150708
  9. ACETAMINOPHEN. [Concomitant]
     Active Substance: ACETAMINOPHEN
     Dosage: 300 MG, UNK
     Route: 065
     Dates: start: 20150520, end: 20150520
  10. CAFFEINE W/CHLORPHENAMINE MALEATE [Concomitant]
     Dosage: 5 MG, UNK
     Route: 065
     Dates: start: 20150701, end: 20150701
  11. CORTRIL [Suspect]
     Active Substance: HYDROCORTISONE
     Indication: PRODUCT USED FOR UNKNOWN INDICATION
     Dosage: UNK
     Route: 048
  12. PREDNIN [Suspect]
     Active Substance: PREDNISOLONE SODIUM PHOSPHATE
     Indication: PRODUCT USED FOR UNKNOWN INDICATION
     Dosage: 100 MG, UNK
     Route: 048
     Dates: start: 20150424, end: 20150424
  13. PREDNIN [Suspect]
     Active Substance: PREDNISOLONE SODIUM PHOSPHATE
     Dosage: 20 MG, UNK
     Route: 048
     Dates: start: 20150701, end: 20150701
  14. ACETAMINOPHEN. [Concomitant]
     Active Substance: ACETAMINOPHEN
     Indication: PRODUCT USED FOR UNKNOWN INDICATION
     Dosage: 300 MG, UNK
     Route: 065
     Dates: start: 20140424, end: 20140424
  15. CAFFEINE W/CHLORPHENAMINE MALEATE [Concomitant]
     Dosage: 5 MG, UNK
     Route: 065
     Dates: start: 20150513, end: 20150513
  16. PREDNIN [Suspect]
     Active Substance: PREDNISOLONE SODIUM PHOSPHATE
     Dosage: 20 MG, UNK
     Route: 048
     Dates: start: 20150708, end: 20150708
  17. ACETAMINOPHEN. [Concomitant]
     Active Substance: ACETAMINOPHEN
     Dosage: 300 MG, UNK
     Route: 065
     Dates: start: 20150513, end: 20150513
  18. OFATUMUMAB [Suspect]
     Active Substance: OFATUMUMAB
     Dosage: 2000 MG, QD
     Route: 041
     Dates: start: 20150513, end: 20150513
  19. PREDNIN [Suspect]
     Active Substance: PREDNISOLONE SODIUM PHOSPHATE
     Dosage: 40 MG, UNK
     Route: 048
     Dates: start: 20150520, end: 20150520
  20. CAFFEINE W/CHLORPHENAMINE MALEATE [Concomitant]
     Dosage: 5 MG, UNK
     Route: 065
     Dates: start: 20150501, end: 20150501
  21. CAFFEINE W/CHLORPHENAMINE MALEATE [Concomitant]
     Dosage: 5 MG, UNK
     Route: 065
     Dates: start: 20150520, end: 20150520
  22. PREDNIN [Suspect]
     Active Substance: PREDNISOLONE SODIUM PHOSPHATE
     Dosage: 40 MG, UNK
     Route: 048
     Dates: start: 20150513, end: 20150513
  23. ACETAMINOPHEN. [Concomitant]
     Active Substance: ACETAMINOPHEN
     Dosage: 300 MG, UNK
     Route: 065
     Dates: start: 20150708, end: 20150708
  24. VALGANCICLOVIR. [Concomitant]
     Active Substance: VALGANCICLOVIR
     Indication: PRODUCT USED FOR UNKNOWN INDICATION
     Route: 048
  25. PREDNIN [Suspect]
     Active Substance: PREDNISOLONE SODIUM PHOSPHATE
     Dosage: 100 MG, UNK
     Route: 048
     Dates: start: 20150501, end: 20150501
  26. ACETAMINOPHEN. [Concomitant]
     Active Substance: ACETAMINOPHEN
     Dosage: 300 MG, UNK
     Route: 065
     Dates: start: 20150701, end: 20150701
  27. CAFFEINE W/CHLORPHENAMINE MALEATE [Concomitant]
     Indication: PRODUCT USED FOR UNKNOWN INDICATION
     Dosage: 5 MG, UNK
     Route: 065
     Dates: start: 20150424, end: 20150424

REACTIONS (15)
  - Concomitant disease aggravated [Fatal]
  - Infection [Recovering/Resolving]
  - Febrile neutropenia [Not Recovered/Not Resolved]
  - Hypoxia [Recovered/Resolved]
  - B-cell small lymphocytic lymphoma [Fatal]
  - Pancytopenia [Fatal]
  - Neutropenia [Fatal]
  - Malignant neoplasm progression [Fatal]
  - Pyrexia [Fatal]
  - Immune thrombocytopenic purpura [Fatal]
  - Urine output decreased [Fatal]
  - Circulatory collapse [Fatal]
  - Urticaria [Recovered/Resolved]
  - Autoimmune haemolytic anaemia [Fatal]
  - Blood pressure decreased [Fatal]

NARRATIVE: CASE EVENT DATE: 20150424
